FAERS Safety Report 25598933 (Version 2)
Quarter: 2025Q4

REPORT INFORMATION
  Report Type: Report from Study
  Country: US (occurrence: US)
  Receive Date: 20250724
  Receipt Date: 20251216
  Transmission Date: 20260118
  Serious: Yes (Other)
  Sender: ALEXION PHARMACEUTICALS
  Company Number: US-ASTRAZENECA-202505USA026782US

PATIENT
  Sex: Female

DRUGS (1)
  1. RAVULIZUMAB [Suspect]
     Active Substance: RAVULIZUMAB
     Indication: Neuromyelitis optica spectrum disorder
     Dosage: UNK
     Route: 065

REACTIONS (6)
  - Neuromyelitis optica spectrum disorder [Unknown]
  - Colitis [Unknown]
  - Large intestine polyp [Unknown]
  - Slow response to stimuli [Unknown]
  - Feeling abnormal [Unknown]
  - Mood altered [Unknown]
